FAERS Safety Report 4620749-5 (Version None)
Quarter: 2005Q1

REPORT INFORMATION
  Report Type: 
  Country: None (occurrence: None)
  Receive Date: 20050325
  Receipt Date: 20050314
  Transmission Date: 20050727
  Serious: Yes (Hospitalization)
  Sender: FDA-Public Use
  Company Number: HQWYE162316MAR05

PATIENT
  Age: 70 Year
  Sex: Male
  Weight: 113.05 kg

DRUGS (6)
  1. ADVIL [Suspect]
     Indication: PAIN
     Dosage: 3 TABELT 2X PER 1 DAY, ORAL
     Route: 048
     Dates: end: 20050306
  2. RYTHMOL [Concomitant]
  3. DILTIAZEM [Concomitant]
  4. COUMADIN [Concomitant]
  5. PRILOSEC [Concomitant]
  6. DIGOXIN [Concomitant]

REACTIONS (3)
  - DIALYSIS [None]
  - NEPHROLITHIASIS [None]
  - RENAL FAILURE ACUTE [None]
